FAERS Safety Report 7633267-7 (Version None)
Quarter: 2011Q3

REPORT INFORMATION
  Report Type: 
  Country: None (occurrence: None)
  Receive Date: 20110725
  Receipt Date: 20110721
  Transmission Date: 20111222
  Serious: Yes (Death)
  Sender: FDA-Public Use
  Company Number: CA-ROCHE-791455

PATIENT
  Age: 50 Year
  Sex: Male

DRUGS (7)
  1. OXYCODONE HCL [Suspect]
     Route: 065
  2. COCAINE [Suspect]
     Route: 065
  3. LAMOTRIGINE [Suspect]
     Route: 065
  4. AMITRIPTYLINE HCL [Suspect]
     Route: 048
  5. TOPIRAMATE [Suspect]
     Route: 065
  6. MORPHINE SULFATE [Suspect]
     Route: 065
  7. DIAZEPAM [Suspect]
     Route: 065

REACTIONS (2)
  - MULTIPLE DRUG OVERDOSE [None]
  - SUBSTANCE ABUSE [None]
